FAERS Safety Report 9413147 (Version 2)
Quarter: 2013Q3

REPORT INFORMATION
  Report Type: Spontaneous
  Country: US (occurrence: US)
  Receive Date: 20130722
  Receipt Date: 20130802
  Transmission Date: 20140515
  Serious: Yes (Other)
  Sender: FDA-Public Use
  Company Number: US-PFIZER INC-2013210795

PATIENT
  Age: 58 Year
  Sex: Female

DRUGS (1)
  1. EFFEXOR XR [Suspect]
     Indication: PANIC ATTACK
     Dosage: 75 MG, 1X/DAY
     Route: 048
     Dates: start: 2000

REACTIONS (3)
  - Hypertension [Unknown]
  - Thyroid disorder [Unknown]
  - Weight decreased [Unknown]
